FAERS Safety Report 7138907-7 (Version None)
Quarter: 2010Q4

REPORT INFORMATION
  Report Type: 
  Country: None (occurrence: None)
  Receive Date: 20101206
  Receipt Date: 20100603
  Transmission Date: 20110411
  Serious: No
  Sender: FDA-Public Use
  Company Number: US-ABBOTT-10P-163-0649519-00

PATIENT
  Sex: Male
  Weight: 13.62 kg

DRUGS (2)
  1. OMNICEF [Suspect]
     Indication: OTITIS MEDIA
     Dosage: 3/4 TSP DAILY
     Dates: start: 20100601
  2. DELSYM [Suspect]
     Indication: OTITIS MEDIA

REACTIONS (1)
  - CHROMATURIA [None]
